FAERS Safety Report 12427891 (Version 1)
Quarter: 2016Q2

REPORT INFORMATION
  Report Type: Spontaneous
  Country: US (occurrence: None)
  Receive Date: 20160531
  Receipt Date: 20160531
  Transmission Date: 20160815
  Serious: No
  Sender: FDA-Public Use
  Company Number: None

PATIENT
  Sex: Female

DRUGS (1)
  1. HUMIRA [Suspect]
     Active Substance: ADALIMUMAB
     Indication: PRODUCT USED FOR UNKNOWN INDICATION
     Dosage: 160MG DAY 1, 80MG DAY 15 EVERY OTHER WEEK SQ
     Route: 058
     Dates: start: 20160414, end: 20160525

REACTIONS (3)
  - Hepatic enzyme increased [None]
  - Jaundice [None]
  - Nausea [None]
